FAERS Safety Report 4929768-2 (Version None)
Quarter: 2006Q1

REPORT INFORMATION
  Report Type: 
  Country: None (occurrence: None)
  Receive Date: 20060301
  Receipt Date: 20051004
  Transmission Date: 20060701
  Serious: Yes (Death, Disabling, Other)
  Sender: FDA-Public Use
  Company Number: US-MERCK-0510USA03109

PATIENT
  Age: 53 Year
  Sex: Male
  Weight: 141 kg

DRUGS (2)
  1. VIOXX [Suspect]
     Indication: BACK PAIN
     Route: 048
     Dates: start: 20030218, end: 20031106
  2. VIOXX [Suspect]
     Indication: PAIN IN EXTREMITY
     Route: 048
     Dates: start: 20030218, end: 20031106

REACTIONS (7)
  - ACUTE MYOCARDIAL INFARCTION [None]
  - CAROTID ARTERY DISEASE [None]
  - CORONARY ARTERY DISEASE [None]
  - MYOCARDIAL INFARCTION [None]
  - RENAL TUBULAR NECROSIS [None]
  - RHABDOMYOLYSIS [None]
  - WRONG TECHNIQUE IN DRUG USAGE PROCESS [None]
